FAERS Safety Report 10428980 (Version 4)
Quarter: 2014Q4

REPORT INFORMATION
  Report Type: Report from Study
  Country: US (occurrence: US)
  Receive Date: 20140904
  Receipt Date: 20141024
  Transmission Date: 20150528
  Serious: Yes (Hospitalization)
  Sender: FDA-Public Use
  Company Number: US-BIOGENIDEC-2014BI089752

PATIENT
  Age: 62 Year
  Sex: Female

DRUGS (25)
  1. FUROSEMIDE. [Concomitant]
     Active Substance: FUROSEMIDE
  2. ASPIRIN. [Concomitant]
     Active Substance: ASPIRIN
     Route: 048
  3. SENEKOT [Concomitant]
     Route: 048
  4. ZOLPIDEM TARTRATE. [Concomitant]
     Active Substance: ZOLPIDEM TARTRATE
     Route: 048
  5. KEPPRA [Concomitant]
     Active Substance: LEVETIRACETAM
     Route: 048
  6. AMLODIPINE BESYLATE. [Concomitant]
     Active Substance: AMLODIPINE BESYLATE
     Route: 048
  7. NAPROXEN. [Concomitant]
     Active Substance: NAPROXEN
     Route: 048
  8. CALCIUM CITRATE [Concomitant]
     Active Substance: CALCIUM CITRATE
     Route: 048
  9. ABILIFY [Concomitant]
     Active Substance: ARIPIPRAZOLE
     Route: 048
  10. ELOCON CREAM [Concomitant]
     Route: 061
  11. POTASSIUM [Concomitant]
     Active Substance: POTASSIUM
     Route: 048
  12. ROBITUSSIN DM [Concomitant]
     Active Substance: DEXTROMETHORPHAN HYDROBROMIDE\GUAIFENESIN
  13. GUAIFENESIN. [Concomitant]
     Active Substance: GUAIFENESIN
  14. NEURONTIN [Concomitant]
     Active Substance: GABAPENTIN
  15. CLONAZEPAM. [Concomitant]
     Active Substance: CLONAZEPAM
     Route: 048
  16. BACLOFEN. [Concomitant]
     Active Substance: BACLOFEN
  17. ASCORBIC ACID. [Concomitant]
     Active Substance: ASCORBIC ACID
     Route: 048
  18. GABAPENTIN. [Concomitant]
     Active Substance: GABAPENTIN
     Route: 048
  19. TYSABRI [Suspect]
     Active Substance: NATALIZUMAB
     Indication: MULTIPLE SCLEROSIS
     Route: 042
     Dates: start: 20070829, end: 20140820
  20. DULOXETINE HCL [Concomitant]
     Active Substance: DULOXETINE HYDROCHLORIDE
  21. CARBAMAZEPINE ER [Concomitant]
     Active Substance: CARBAMAZEPINE
     Route: 048
  22. TRAMADOL HCL [Concomitant]
     Active Substance: TRAMADOL HYDROCHLORIDE
     Route: 048
  23. PREMARIN [Concomitant]
     Active Substance: ESTROGENS, CONJUGATED
     Route: 048
  24. FOSAMAX [Concomitant]
     Active Substance: ALENDRONATE SODIUM
     Route: 048
  25. HYDROCODONE ACETAMINOPHEN [Concomitant]
     Active Substance: ACETAMINOPHEN\HYDROCODONE BITARTRATE

REACTIONS (3)
  - Expanded disability status scale score increased [Unknown]
  - Disease susceptibility [Unknown]
  - Toxicity to various agents [Unknown]

NARRATIVE: CASE EVENT DATE: 20140721
